FAERS Safety Report 4668472-5 (Version None)
Quarter: 2005Q2

REPORT INFORMATION
  Report Type: 
  Country: None (occurrence: None)
  Receive Date: 20050518
  Receipt Date: 20050427
  Transmission Date: 20051028
  Serious: Yes (Hospitalization, Disabling)
  Sender: FDA-Public Use
  Company Number: B0377791A

PATIENT
  Age: 4 Year
  Sex: Female
  Weight: 16.9645 kg

DRUGS (3)
  1. LAMICTAL [Suspect]
     Indication: EPILEPSY
     Dosage: SEE DOSAGE TEXT / ORAL
     Route: 048
     Dates: start: 20040901
  2. VALPROATE SODIUM [Suspect]
     Indication: EPILEPSY
     Dosage: SEE DOSAGE TEXT / ORAL
     Route: 048
     Dates: start: 20040901
  3. CARNITINE [Concomitant]

REACTIONS (9)
  - ABNORMAL BEHAVIOUR [None]
  - ANOREXIA [None]
  - CONDITION AGGRAVATED [None]
  - COORDINATION ABNORMAL [None]
  - DRUG TOXICITY [None]
  - EPILEPSY [None]
  - FOOD INTOLERANCE [None]
  - IRRITABILITY [None]
  - TREMOR [None]
